FAERS Safety Report 23523269 (Version 1)
Quarter: 2024Q1

REPORT INFORMATION
  Report Type: Spontaneous
  Country: FI (occurrence: FI)
  Receive Date: 20240214
  Receipt Date: 20240214
  Transmission Date: 20240410
  Serious: Yes (Life-Threatening, Other)
  Sender: FDA-Public Use
  Company Number: None

PATIENT
  Age: 57 Year
  Sex: Male

DRUGS (11)
  1. SARCLISA [Suspect]
     Active Substance: ISATUXIMAB\ISATUXIMAB-IRFC
     Indication: Plasma cell myeloma
     Dosage: UNK
     Route: 042
     Dates: start: 20231025, end: 20240124
  2. KYPROLIS [Suspect]
     Active Substance: CARFILZOMIB
     Indication: Plasma cell myeloma
     Dosage: UNK
     Route: 042
     Dates: start: 20230728, end: 20240124
  3. DEXAMETASON ABCUR [Concomitant]
     Indication: Plasma cell myeloma
     Dosage: UNK
     Dates: start: 2023, end: 20240124
  4. FILGRASTIM [Concomitant]
     Active Substance: FILGRASTIM
     Indication: White blood cell disorder
     Dosage: UNK
     Dates: end: 20230929
  5. QUETIAPINE FUMARATE [Concomitant]
     Active Substance: QUETIAPINE FUMARATE
     Indication: Schizophrenia
  6. ACYCLOSTAD [Concomitant]
     Indication: Antiviral prophylaxis
  7. CALCICHEW D3 APPELSIINI [Concomitant]
     Indication: Plasma cell myeloma
  8. ZUCLOPENTHIXOL [Concomitant]
     Active Substance: ZUCLOPENTHIXOL
     Indication: Schizophrenia
     Dosage: UNK
  9. TSOLEDRONIHAPPO HAMELN [Concomitant]
     Indication: Plasma cell myeloma
     Dates: end: 20230921
  10. OXYCODONE [Concomitant]
     Active Substance: OXYCODONE\OXYCODONE HYDROCHLORIDE
     Indication: Pain
     Dosage: UNK
  11. SIMVASTATIN [Concomitant]
     Active Substance: SIMVASTATIN
     Indication: Hyperlipidaemia
     Dosage: UNK

REACTIONS (1)
  - Progressive multifocal leukoencephalopathy [Unknown]

NARRATIVE: CASE EVENT DATE: 20240101
